FAERS Safety Report 14187211 (Version 2)
Quarter: 2023Q1

REPORT INFORMATION
  Report Type: Spontaneous
  Country: ES (occurrence: ES)
  Receive Date: 20171114
  Receipt Date: 20230329
  Transmission Date: 20230418
  Serious: Yes (Disabling)
  Sender: FDA-Public Use
  Company Number: ES-TAKEDA-2017TEU004794

PATIENT
  Age: 83 Year
  Sex: Male

DRUGS (6)
  1. LEUPROLIDE ACETATE [Suspect]
     Active Substance: LEUPROLIDE ACETATE
     Indication: Prostate cancer recurrent
     Dosage: 22.5 MG, UNK
     Route: 030
     Dates: start: 20170710
  2. ENZALUTAMIDE [Suspect]
     Active Substance: ENZALUTAMIDE
     Indication: Prostate cancer recurrent
     Dosage: 40 (UNIT NOT PROVIDED)
     Route: 048
     Dates: start: 20170711, end: 20170727
  3. Nebivolol/hydrochlorothiazide teva [Concomitant]
     Indication: Hypertension
     Dosage: UNK
     Dates: start: 20031010
  4. ASPIRIN [Concomitant]
     Active Substance: ASPIRIN
     Indication: Hypertension
     Dosage: UNK
     Dates: start: 20031010
  5. QUINAPRIL HYDROCHLORIDE [Concomitant]
     Active Substance: QUINAPRIL HYDROCHLORIDE
     Indication: Hypertension
     Dosage: UNK
     Dates: start: 20031010
  6. CLORAZEPATE DIPOTASSIUM [Concomitant]
     Active Substance: CLORAZEPATE DIPOTASSIUM
     Indication: Product used for unknown indication
     Dates: start: 20030615

REACTIONS (2)
  - Cognitive disorder [Recovered/Resolved]
  - Memory impairment [Recovered/Resolved]

NARRATIVE: CASE EVENT DATE: 20171026
